FAERS Safety Report 5207984-2 (Version None)
Quarter: 2007Q1

REPORT INFORMATION
  Report Type: 
  Country: None (occurrence: None)
  Receive Date: 20070110
  Receipt Date: 20060313
  Transmission Date: 20070707
  Serious: Yes (Hospitalization)
  Sender: FDA-Public Use
  Company Number: GB-GUERBET-20060002

PATIENT
  Age: 26 Year
  Sex: Female

DRUGS (8)
  1. DOTAREM: 05GS613A / MEGLUMINE GADOTERATE [Suspect]
     Indication: NUCLEAR MAGNETIC RESONANCE IMAGING
     Dosage: 15 ML, MILLILITRE(S), 1,7, INTRAVENOUS (NOT OTHERWISE SPECIFIED)
     Route: 042
     Dates: start: 20051026
  2. HRF / GONADORELIN [Concomitant]
  3. PROTIRELIN [Concomitant]
  4. THYROTROPHIN [Concomitant]
  5. SYNACTHENE/TETRACOSACTIDE [Concomitant]
  6. .. [Concomitant]
  7. EMLA/LIDOCAINE [Concomitant]
  8. LIDOCAINE [Concomitant]

REACTIONS (4)
  - DRUG INTOLERANCE [None]
  - INJECTION SITE ABSCESS [None]
  - INJECTION SITE EXTRAVASATION [None]
  - SKIN GRAFT [None]
